FAERS Safety Report 12369449 (Version 1)
Quarter: 2016Q2

REPORT INFORMATION
  Report Type: Spontaneous
  Country: US (occurrence: None)
  Receive Date: 20160513
  Receipt Date: 20160513
  Transmission Date: 20160815
  Serious: Yes (Disabling)
  Sender: FDA-Public Use
  Company Number: None

PATIENT
  Age: 52 Year
  Sex: Male
  Weight: 61.24 kg

DRUGS (3)
  1. AVELOX [Suspect]
     Active Substance: MOXIFLOXACIN HYDROCHLORIDE
     Indication: STAPHYLOCOCCAL INFECTION
     Route: 048
     Dates: start: 20060411, end: 20060421
  2. AVELOX [Suspect]
     Active Substance: MOXIFLOXACIN HYDROCHLORIDE
     Indication: ACNE
     Route: 048
     Dates: start: 20060411, end: 20060421
  3. AVELOX [Suspect]
     Active Substance: MOXIFLOXACIN HYDROCHLORIDE
     Indication: SINUSITIS
     Route: 048
     Dates: start: 20060411, end: 20060421

REACTIONS (5)
  - Brain injury [None]
  - Post concussion syndrome [None]
  - Headache [None]
  - Neuropathy peripheral [None]
  - Tendon disorder [None]

NARRATIVE: CASE EVENT DATE: 20060720
